FAERS Safety Report 10327529 (Version 5)
Quarter: 2014Q4

REPORT INFORMATION
  Report Type: Report from Study
  Country: US (occurrence: US)
  Receive Date: 20140721
  Receipt Date: 20141030
  Transmission Date: 20150528
  Serious: Yes (Hospitalization)
  Sender: FDA-Public Use
  Company Number: US-ACTELION-A-NJ2014-100622

PATIENT
  Age: 37 Year
  Sex: Male

DRUGS (4)
  1. MACITENTAN [Suspect]
     Active Substance: MACITENTAN
     Indication: PULMONARY ARTERIAL HYPERTENSION
     Dosage: 10 MG, QD
     Route: 048
     Dates: start: 20140903, end: 20141020
  2. FLOLAN [Concomitant]
     Active Substance: EPOPROSTENOL SODIUM
  3. OXYGEN. [Concomitant]
     Active Substance: OXYGEN
     Dosage: 2-3 L/MIN, PRN
     Dates: start: 20140528
  4. REVATIO [Concomitant]
     Active Substance: SILDENAFIL CITRATE
     Dosage: 20 MG, TID
     Dates: start: 20140515

REACTIONS (5)
  - Lung disorder [Unknown]
  - Lung transplant [Unknown]
  - Cardiac failure congestive [Unknown]
  - Fluid overload [Unknown]
  - Fluid retention [Unknown]

NARRATIVE: CASE EVENT DATE: 20140923
